FAERS Safety Report 25477581 (Version 1)
Quarter: 2025Q2

REPORT INFORMATION
  Report Type: Report from Study
  Country: GB (occurrence: GB)
  Receive Date: 20250625
  Receipt Date: 20250625
  Transmission Date: 20250716
  Serious: Yes (Hospitalization)
  Sender: SAMSUNG BIOEPIS
  Company Number: GB-SAMSUNG BIOEPIS-SB-2025-02895

PATIENT
  Age: 58 Year
  Sex: Female

DRUGS (2)
  1. PYZCHIVA [Suspect]
     Active Substance: USTEKINUMAB-TTWE
     Indication: Crohn^s disease
     Dates: start: 20240807
  2. PYZCHIVA [Suspect]
     Active Substance: USTEKINUMAB-TTWE
     Dates: start: 202412

REACTIONS (3)
  - Wound [Recovering/Resolving]
  - Wound infection [Recovered/Resolved]
  - Vaginal cyst [Unknown]
